FAERS Safety Report 17640986 (Version 2)
Quarter: 2020Q2

REPORT INFORMATION
  Report Type: Report from Study
  Country: None (occurrence: DE)
  Receive Date: 20200408
  Receipt Date: 20200515
  Transmission Date: 20200713
  Serious: Yes (Hospitalization)
  Sender: FDA-Public Use
  Company Number: DE-ABBVIE-20K-062-3255968-00

PATIENT
  Age: 59 Year
  Sex: Female

DRUGS (9)
  1. DUODOPA [Suspect]
     Active Substance: CARBIDOPA\LEVODOPA
     Dosage: UP TO 4X1.6 ML DAILY AS BOLUS
     Route: 050
     Dates: start: 20200106
  2. MADOPAR LT [Concomitant]
     Active Substance: BENSERAZIDE HYDROCHLORIDE\LEVODOPA
     Indication: PRODUCT USED FOR UNKNOWN INDICATION
     Dosage: UP TO 5 DAILY
     Dates: start: 20200106
  3. MIRTAZAPIN [Concomitant]
     Active Substance: MIRTAZAPINE
     Indication: PRODUCT USED FOR UNKNOWN INDICATION
  4. FRESUBIN HP ENERGY EB [Concomitant]
     Indication: PRODUCT USED FOR UNKNOWN INDICATION
     Dosage: TUBE FEED
     Dates: start: 20200106
  5. PANTOZOL [Concomitant]
     Active Substance: PANTOPRAZOLE SODIUM
     Indication: PRODUCT USED FOR UNKNOWN INDICATION
  6. DUODOPA [Suspect]
     Active Substance: CARBIDOPA\LEVODOPA
     Indication: PARKINSON^S DISEASE
     Dosage: MD 5.9 ML CRD 3.8 ML/H ED 1.6 ML
     Route: 050
     Dates: start: 20170621
  7. AMINEURIN [Concomitant]
     Active Substance: AMITRIPTYLINE HYDROCHLORIDE
     Indication: PRODUCT USED FOR UNKNOWN INDICATION
     Dates: start: 20200106
  8. EUTHYROX [Concomitant]
     Active Substance: LEVOTHYROXINE SODIUM
     Indication: PRODUCT USED FOR UNKNOWN INDICATION
  9. LEVOCOMP [Concomitant]
     Active Substance: CARBIDOPA\LEVODOPA
     Indication: PRODUCT USED FOR UNKNOWN INDICATION
     Dosage: LEVOCOMP RETARD
     Dates: start: 20200106

REACTIONS (11)
  - Coma [Recovering/Resolving]
  - Musculoskeletal disorder [Unknown]
  - Mood disorder due to a general medical condition [Unknown]
  - Deep brain stimulation [Unknown]
  - Salivary hypersecretion [Unknown]
  - Multiple system atrophy [Unknown]
  - General physical health deterioration [Unknown]
  - Dyspnoea [Recovering/Resolving]
  - Hospitalisation [Unknown]
  - Muscle disorder [Unknown]
  - Parkinson^s disease [Unknown]

NARRATIVE: CASE EVENT DATE: 201912
